FAERS Safety Report 9249450 (Version 3)
Quarter: 2013Q3

REPORT INFORMATION
  Report Type: Spontaneous
  Country: US (occurrence: US)
  Receive Date: 20130423
  Receipt Date: 20130924
  Transmission Date: 20140515
  Serious: Yes (Other)
  Sender: FDA-Public Use
  Company Number: US-GLAXOSMITHKLINE-A1020999A

PATIENT
  Age: 24 Year
  Sex: Female

DRUGS (1)
  1. LAMICTAL [Suspect]
     Indication: CONVULSION
     Dosage: 300MG TWICE PER DAY
     Route: 048
     Dates: start: 20090112

REACTIONS (5)
  - Convulsion [Recovered/Resolved]
  - Drug administration error [Unknown]
  - Aura [Recovered/Resolved]
  - Incontinence [Recovered/Resolved]
  - Headache [Recovered/Resolved]
